FAERS Safety Report 4985847-5 (Version None)
Quarter: 2006Q2

REPORT INFORMATION
  Report Type: 
  Country: None (occurrence: None)
  Receive Date: 20060428
  Receipt Date: 20050617
  Transmission Date: 20061013
  Serious: No
  Sender: FDA-Public Use
  Company Number: US-GLAXOSMITHKLINE-A0563162A

PATIENT
  Sex: Male

DRUGS (1)
  1. ZOFRAN [Suspect]
     Route: 048

REACTIONS (1)
  - DRUG INEFFECTIVE [None]
